FAERS Safety Report 9848731 (Version 1)
Quarter: 2013Q4

REPORT INFORMATION
  Report Type: Spontaneous
  Country: US (occurrence: None)
  Receive Date: 20131226
  Receipt Date: 20131226
  Transmission Date: 20140711
  Serious: Yes (Other)
  Sender: FDA-Public Use
  Company Number: PHEH2013US003096

PATIENT
  Sex: Female

DRUGS (9)
  1. TEKTURNA (ALISKIREN) UNKNOWN [Suspect]
     Route: 048
  2. LEVOXYL (LEVOTHYROXINE SODIUM) [Concomitant]
  3. VERAPAMIL (VERAPAMIL) [Concomitant]
  4. PRAVASTATIN (PRAVASTATIN) [Concomitant]
  5. CELEXA (CITALOPRAM HYDROBROMIDE) [Concomitant]
  6. METFORMIN (METFORMIN) [Concomitant]
  7. KEPPRA (LEVETIRACETAM) [Concomitant]
  8. VIMPAT (LACOSAMIDE) [Concomitant]
  9. ASPIRIN (ACETYLSALICYLIC ACID) [Concomitant]

REACTIONS (1)
  - Grand mal convulsion [None]
